FAERS Safety Report 8112686-9 (Version None)
Quarter: 2012Q1

REPORT INFORMATION
  Report Type: 
  Country: None (occurrence: None)
  Receive Date: 20120203
  Receipt Date: 20120130
  Transmission Date: 20120608
  Serious: Yes (Hospitalization, Disabling, Other)
  Sender: FDA-Public Use
  Company Number: BR-ABBOTT-10P-020-0624247-00

PATIENT
  Sex: Female
  Weight: 67 kg

DRUGS (7)
  1. RANITIDINE [Concomitant]
     Indication: GASTRIC DISORDER
     Dosage: 300 MG DAILY
     Route: 048
  2. SODIUM ALENDRONATE, PAROXETINE, MELOXICAM, CHLOROQUINE DIPHOSPHATE [Concomitant]
     Indication: RHEUMATOID ARTHRITIS
     Dosage: SODIUM ALENDRONATE 70MG, PAROXETINE 100MG, MELOXICAM 15MG, CHLOROQUINE DIPHOSPHATE 50MG
     Route: 048
     Dates: start: 20030101
  3. HUMIRA [Suspect]
     Indication: RHEUMATOID ARTHRITIS
     Route: 058
     Dates: start: 20090101
  4. AMILORIDE HYDROCHLORIDE 2.5MG, HYDROCHLOROTHIAZIDE 25MG (MODURETIC) [Concomitant]
     Indication: DIURETIC THERAPY
     Route: 048
     Dates: start: 20091001
  5. NORTRIPTYLINE10MG,CYCLOBENZAPRINE2.5MG,NIMESULIDE100MG,PREDNISONE 6MG [Concomitant]
     Indication: RHEUMATOID ARTHRITIS
     Route: 048
     Dates: start: 20030101
  6. CALCIUM CARBONATE [Concomitant]
     Indication: BONE DISORDER
     Route: 048
  7. RANITIDINE [Concomitant]
     Indication: PROPHYLAXIS

REACTIONS (6)
  - ORAL DISORDER [None]
  - LISTLESS [None]
  - HYPOAESTHESIA [None]
  - ERYSIPELAS [None]
  - CEREBROVASCULAR ACCIDENT [None]
  - MONOPARESIS [None]
